FAERS Safety Report 25769315 (Version 3)
Quarter: 2025Q4

REPORT INFORMATION
  Report Type: Spontaneous
  Country: US (occurrence: US)
  Receive Date: 20250906
  Receipt Date: 20251109
  Transmission Date: 20260118
  Serious: No
  Sender: BAUSCH AND LOMB
  Company Number: US-BAUSCHBL-2025BNL015561

PATIENT
  Sex: Female

DRUGS (1)
  1. LUMIFY PRESERVATIVE FREE EYE DROPS [Suspect]
     Active Substance: BRIMONIDINE TARTRATE
     Indication: Product used for unknown indication
     Route: 065

REACTIONS (4)
  - Product package associated injury [Unknown]
  - Nail injury [Unknown]
  - Product closure removal difficult [Unknown]
  - Product complaint [Unknown]
